FAERS Safety Report 18997104 (Version 2)
Quarter: 2021Q2

REPORT INFORMATION
  Report Type: Spontaneous
  Country: US (occurrence: US)
  Receive Date: 20210311
  Receipt Date: 20210401
  Transmission Date: 20210717
  Serious: Yes (Other)
  Sender: FDA-Public Use
  Company Number: US-GLAXOSMITHKLINE-US2021GSK053670

PATIENT
  Sex: Male

DRUGS (6)
  1. RANITIDINE. [Suspect]
     Active Substance: RANITIDINE
     Dosage: |OVER THE COUNTER
     Route: 065
     Dates: start: 199605, end: 201712
  2. RANITIDINE CAPSULE [Suspect]
     Active Substance: RANITIDINE
     Dosage: 150 MG
     Route: 065
     Dates: start: 198901, end: 199605
  3. ZANTAC [Suspect]
     Active Substance: RANITIDINE HYDROCHLORIDE
     Dosage: OCCASIONAL|150 MG|BOTH
     Route: 065
     Dates: start: 198901, end: 199605
  4. ZANTAC [Suspect]
     Active Substance: RANITIDINE HYDROCHLORIDE
     Dosage: OCCASIONAL|150 MG|BOTH
     Route: 065
     Dates: start: 198901, end: 199605
  5. RANITIDINE. [Suspect]
     Active Substance: RANITIDINE
     Dosage: |OVER THE COUNTER
     Route: 065
     Dates: start: 199605, end: 201712
  6. ZANTAC [Suspect]
     Active Substance: RANITIDINE HYDROCHLORIDE
     Dosage: 150 MG
     Route: 065
     Dates: start: 198901, end: 199605

REACTIONS (1)
  - Renal cancer [Unknown]
